FAERS Safety Report 4528285-1 (Version None)
Quarter: 2004Q4

REPORT INFORMATION
  Report Type: 
  Country: None (occurrence: None)
  Receive Date: 20041130
  Receipt Date: 20040804
  Transmission Date: 20050328
  Serious: No
  Sender: FDA-Public Use
  Company Number: WAES 0408USA00357

PATIENT
  Age: 11 Year
  Sex: Female
  Weight: 34.927 kg

DRUGS (1)
  1. ZETIA [Suspect]
     Indication: LOW DENSITY LIPOPROTEIN INCREASED
     Dosage: 10 MG/DAILY/; 15 MG/DAILY
     Dates: start: 20031201

REACTIONS (3)
  - HIGH DENSITY LIPOPROTEIN DECREASED [None]
  - MEDICATION ERROR [None]
  - PRESCRIBED OVERDOSE [None]
